FAERS Safety Report 10057874 (Version 1)
Quarter: 2014Q2

REPORT INFORMATION
  Report Type: Spontaneous
  Country: DE (occurrence: DE)
  Receive Date: 20140404
  Receipt Date: 20140404
  Transmission Date: 20141212
  Serious: Yes (Congenital Anomaly, Other)
  Sender: FDA-Public Use
  Company Number: GXKR2014DE001479

PATIENT
  Sex: 0

DRUGS (3)
  1. LAMOTRIGINE [Suspect]
     Indication: EPILEPSY
     Dosage: 200 [MG/D ]
     Route: 064
     Dates: start: 20120608, end: 20130307
  2. ORFIRIL [Suspect]
     Indication: EPILEPSY
     Dosage: 800 [MG/D] DOSAGE: 300-0-500 MG/D
     Route: 064
     Dates: start: 20120608, end: 20130307
  3. FOLSAEURE [Concomitant]
     Indication: PROPHYLAXIS OF NEURAL TUBE DEFECT
     Route: 064

REACTIONS (8)
  - Neonatal respiratory distress syndrome [Recovered/Resolved]
  - Hypotonia neonatal [Unknown]
  - Agitation neonatal [Recovered/Resolved]
  - Atrial septal defect [Unknown]
  - Microphthalmos [Unknown]
  - Dysmorphism [Not Recovered/Not Resolved]
  - Cardiac septal hypertrophy [Unknown]
  - Hypoglycaemia neonatal [Recovered/Resolved]
